FAERS Safety Report 10194969 (Version 1)
Quarter: 2014Q2

REPORT INFORMATION
  Report Type: Spontaneous
  Country: US (occurrence: US)
  Receive Date: 20140526
  Receipt Date: 20140526
  Transmission Date: 20141212
  Serious: No
  Sender: FDA-Public Use
  Company Number: US-PFIZER INC-2014143155

PATIENT
  Sex: 0

DRUGS (2)
  1. PRISTIQ [Suspect]
     Dosage: UNK, ALTERNATE DAY
  2. PRISTIQ [Suspect]
     Dosage: UNK, EVERY THIRD DAY

REACTIONS (2)
  - Blood pressure increased [Unknown]
  - Feeling jittery [Unknown]
